FAERS Safety Report 9247755 (Version 1)
Quarter: 2013Q1

REPORT INFORMATION
  Report Type: Spontaneous
  Country: US (occurrence: None)
  Receive Date: 20130305
  Receipt Date: 20130305
  Transmission Date: 20140127
  Serious: Yes (Hospitalization)
  Sender: FDA-Public Use
  Company Number: 163-21880-12092143

PATIENT
  Age: 53 Year
  Sex: Female
  Weight: 73.48 kg

DRUGS (8)
  1. REVLIMID [Concomitant]
     Indication: PLASMA CELL MYELOMA
     Dosage: 10 MG, 21 IN 28 D, PO
     Route: 048
     Dates: start: 20120519
  2. OXYCODONE (OXYCODONE) (UNKNOWN) (OXYCODONE) [Concomitant]
  3. OXYCONTIN (OXYCODONE HYDROCHLORIDE) 9UNKNOWN) [Concomitant]
  4. DIFLUCAN (FLUCONAZOLE) (UNKNOWN) [Concomitant]
  5. LEVAQUIN (LEVOFLOXACIN) (UNKNOWN) [Concomitant]
  6. SERTRALINE (SERTRALINE) (UNKNOWN) [Concomitant]
  7. SYNTHROID [Concomitant]
  8. PROTONIX (PANTOPRAZOLE SODIUM) (UNKNOWN) [Concomitant]

REACTIONS (1)
  - Pneumonia [None]
